FAERS Safety Report 4732312-6 (Version None)
Quarter: 2005Q3

REPORT INFORMATION
  Report Type: 
  Country: None (occurrence: None)
  Receive Date: 20050726
  Receipt Date: 20050427
  Transmission Date: 20060218
  Serious: Yes (Hospitalization)
  Sender: FDA-Public Use
  Company Number: 05USA0106

PATIENT
  Age: 66 Year
  Sex: Female
  Weight: 65 kg

DRUGS (8)
  1. AGGRASTAT [Suspect]
     Indication: CORONARY ANGIOPLASTY
     Dosage: 25 UG/KG
     Dates: start: 20050420, end: 20050420
  2. ABCIXIMAB (ABCIXIMAB) (INJECTION FOR INFUSION) [Suspect]
     Indication: CORONARY ANGIOPLASTY
     Dosage: 0.25 MG/KG
     Dates: start: 20050420, end: 20050420
  3. HEPARIN UNFRACTIONATED(HEPARIN) (INJECTION) [Suspect]
     Indication: CORONARY ANGIOPLASTY
     Dosage: 50 IU/KG
     Dates: start: 20050420, end: 20050420
  4. BIVALIRUDIN (BIVALIRUDIN) (INJECTION) [Suspect]
     Indication: CORONARY ANGIOPLASTY
     Dosage: 0.75 MG/KG 14:24-16:19
     Dates: start: 20050420, end: 20050420
  5. PLACEBO (PLACEBO) (INJECTION) [Suspect]
     Indication: CORONARY ANGIOPLASTY
     Dosage: PLACEBO FOR TIROFIBAN HCL
     Dates: start: 20040420, end: 20050420
  6. PLACEBO (PLACEBO) (INJECTION) [Suspect]
     Indication: CORONARY ANGIOPLASTY
     Dosage: PLACEBO FOR ABCIXIMAB
     Dates: start: 20050420, end: 20050420
  7. CLOPIDOGREL BISULFATE [Suspect]
     Indication: CORONARY ANGIOPLASTY
     Dosage: 600 MG
     Dates: start: 20050420, end: 20050420
  8. ASPIRIN [Concomitant]

REACTIONS (1)
  - THROMBOCYTOPENIA [None]
